FAERS Safety Report 16539207 (Version 1)
Quarter: 2019Q3

REPORT INFORMATION
  Report Type: Spontaneous
  Country: US (occurrence: US)
  Receive Date: 20190708
  Receipt Date: 20190708
  Transmission Date: 20191004
  Serious: No
  Sender: FDA-Public Use
  Company Number: US-MYLANLABS-2019M1057445

PATIENT
  Sex: Female
  Weight: 73 kg

DRUGS (2)
  1. THIOTHIXENE CAPSULES, USP [Suspect]
     Active Substance: THIOTHIXENE
     Indication: PSYCHOTIC DISORDER
  2. THIOTHIXENE CAPSULES, USP [Suspect]
     Active Substance: THIOTHIXENE
     Indication: POST-TRAUMATIC STRESS DISORDER
     Dosage: 10 MILLIGRAM
     Dates: start: 2017

REACTIONS (4)
  - Middle insomnia [Unknown]
  - Poor quality sleep [Unknown]
  - Anger [Unknown]
  - Off label use [Unknown]
